FAERS Safety Report 4597832-6 (Version None)
Quarter: 2005Q1

REPORT INFORMATION
  Report Type: 
  Country: None (occurrence: None)
  Receive Date: 20050125
  Receipt Date: 20041111
  Transmission Date: 20050727
  Serious: No
  Sender: FDA-Public Use
  Company Number: USA030125488

PATIENT
  Age: 57 Year
  Sex: Male
  Weight: 44 kg

DRUGS (7)
  1. FORTEO [Suspect]
     Indication: OSTEOPOROSIS
     Dosage: 40 UG/1 DAY
     Dates: start: 20021228
  2. ACTONEL [Concomitant]
  3. COLACE (DOCUSATE SODIUM) [Concomitant]
  4. VITAMIN K [Concomitant]
  5. COD-LIVER OIL [Concomitant]
  6. CALCIUM GLUCONATE [Concomitant]
  7. VITAMIN E [Concomitant]

REACTIONS (19)
  - ASTHENIA [None]
  - BLOOD PHOSPHORUS INCREASED [None]
  - BONE DENSITY DECREASED [None]
  - CONSTIPATION [None]
  - DIZZINESS [None]
  - FATIGUE [None]
  - FEELING ABNORMAL [None]
  - GOUT [None]
  - HUNGER [None]
  - INJECTION [None]
  - INJECTION SITE HAEMORRHAGE [None]
  - INTENTIONAL MISUSE [None]
  - MUSCLE SPASMS [None]
  - MUSCULOSKELETAL STIFFNESS [None]
  - MYALGIA [None]
  - POLYDIPSIA [None]
  - PRESCRIBED OVERDOSE [None]
  - SOMNOLENCE [None]
  - URINE PHOSPHATE INCREASED [None]
